FAERS Safety Report 5821326-0 (Version None)
Quarter: 2008Q3

REPORT INFORMATION
  Report Type: 
  Country: None (occurrence: None)
  Receive Date: 20080724
  Receipt Date: 20080718
  Transmission Date: 20090109
  Serious: Yes (Hospitalization)
  Sender: FDA-Public Use
  Company Number: FR-MERCK-0807FRA00064

PATIENT
  Age: 27 Year
  Sex: Male

DRUGS (4)
  1. NOROXIN [Suspect]
     Indication: DYSURIA
     Route: 048
     Dates: start: 20080131, end: 20080202
  2. NOROXIN [Suspect]
     Indication: CHROMATURIA
     Route: 048
     Dates: start: 20080131, end: 20080202
  3. IBUPROFEN [Suspect]
     Indication: DYSURIA
     Route: 048
     Dates: start: 20080131, end: 20080202
  4. IBUPROFEN [Suspect]
     Indication: CHROMATURIA
     Route: 048
     Dates: start: 20080131, end: 20080202

REACTIONS (3)
  - DERMATITIS BULLOUS [None]
  - PURPURA [None]
  - SKIN EXFOLIATION [None]
